FAERS Safety Report 11517505 (Version 1)
Quarter: 2015Q3

REPORT INFORMATION
  Report Type: Spontaneous
  Country: DE (occurrence: DE)
  Receive Date: 20150917
  Receipt Date: 20150917
  Transmission Date: 20151125
  Serious: Yes (Hospitalization, Other)
  Sender: FDA-Public Use
  Company Number: DE-MYLANLABS-2015M1030431

PATIENT

DRUGS (2)
  1. SUMATRIPTAN DURA 50 MG FILMTABLETTEN [Suspect]
     Active Substance: SUMATRIPTAN
     Indication: PRODUCT USED FOR UNKNOWN INDICATION
     Dosage: ONCE 8 TABLETS(=400MG)
     Route: 048
     Dates: start: 20150903, end: 20150903
  2. TRAMADOL                           /00599202/ [Suspect]
     Active Substance: TRAMADOL
     Indication: PRODUCT USED FOR UNKNOWN INDICATION
     Dosage: ONCE 50ML(=5000MG)
     Route: 048
     Dates: start: 20150903, end: 20150903

REACTIONS (4)
  - Vomiting [Unknown]
  - Somnolence [Unknown]
  - Overdose [Unknown]
  - Suicide attempt [Unknown]

NARRATIVE: CASE EVENT DATE: 20150903
